FAERS Safety Report 12620985 (Version 4)
Quarter: 2016Q4

REPORT INFORMATION
  Report Type: Spontaneous
  Country: CN (occurrence: CN)
  Receive Date: 20160804
  Receipt Date: 20161003
  Transmission Date: 20170207
  Serious: Yes (Hospitalization, Other)
  Sender: FDA-Public Use
  Company Number: PHHY2016CN106567

PATIENT
  Age: 76 Year
  Sex: Male

DRUGS (4)
  1. MIDODRINE [Concomitant]
     Active Substance: MIDODRINE
     Indication: BLOOD PRESSURE INCREASED
     Dosage: 1 DF, BID
     Route: 048
  2. EXELON [Suspect]
     Active Substance: RIVASTIGMINE TARTRATE
     Indication: CEREBRAL ATROPHY
     Dosage: 1.5 MG, QD
     Route: 048
     Dates: start: 20160725, end: 20160728
  3. EXELON [Suspect]
     Active Substance: RIVASTIGMINE TARTRATE
     Indication: COGNITIVE DISORDER
     Dosage: 1.5 MG, BID
     Route: 048
     Dates: start: 20160728
  4. ORYZANOL [Concomitant]
     Active Substance: GAMMA ORYZANOL
     Indication: NUTRITIONAL SUPPLEMENTATION
     Dosage: 2 DF, QD
     Route: 048

REACTIONS (5)
  - Product use issue [Unknown]
  - Enuresis [Recovered/Resolved]
  - Delirium [Recovered/Resolved]
  - Trance [Recovered/Resolved]
  - Gastrointestinal disorder [Not Recovered/Not Resolved]

NARRATIVE: CASE EVENT DATE: 20160801
